FAERS Safety Report 9962052 (Version 1)
Quarter: 2014Q1

REPORT INFORMATION
  Report Type: Spontaneous
  Country: US (occurrence: None)
  Receive Date: 20140304
  Receipt Date: 20140304
  Transmission Date: 20141002
  Serious: Yes (Hospitalization)
  Sender: FDA-Public Use
  Company Number: None

PATIENT
  Age: 69 Year
  Sex: Male
  Weight: 65.8 kg

DRUGS (2)
  1. MORPHINE [Suspect]
     Indication: PAIN
     Route: 048
     Dates: start: 20130721
  2. ACETAMINOPHEN/HYDROCODONE [Suspect]
     Indication: PAIN
     Dosage: 5/325 MG PRN PO
     Route: 048
     Dates: start: 20130404

REACTIONS (2)
  - Constipation [None]
  - Abdominal pain [None]
